FAERS Safety Report 20161512 (Version 2)
Quarter: 2021Q4

REPORT INFORMATION
  Report Type: Spontaneous
  Country: IT (occurrence: IT)
  Receive Date: 20211208
  Receipt Date: 20211220
  Transmission Date: 20220303
  Serious: Yes (Hospitalization, Other)
  Sender: FDA-Public Use
  Company Number: IT-TEVA-2021-IT-1984976

PATIENT
  Age: 60 Year
  Sex: Male

DRUGS (10)
  1. ETOPOSIDE [Suspect]
     Active Substance: ETOPOSIDE
     Indication: Plasma cell leukaemia
     Dosage: 200MG/M2 ON DAYS 2-4; SYSTEMIC THERAPY
     Route: 065
     Dates: start: 2019, end: 2019
  2. METHOTREXATE [Suspect]
     Active Substance: METHOTREXATE
     Indication: Plasma cell leukaemia
     Route: 037
     Dates: start: 2019, end: 2019
  3. METHOTREXATE [Suspect]
     Active Substance: METHOTREXATE
     Indication: Metastases to central nervous system
     Route: 037
  4. DEXAMETHASONE [Suspect]
     Active Substance: DEXAMETHASONE
     Indication: Plasma cell leukaemia
     Route: 037
     Dates: start: 2019, end: 2019
  5. DEXAMETHASONE [Suspect]
     Active Substance: DEXAMETHASONE
     Indication: Metastases to central nervous system
     Route: 037
  6. DEXAMETHASONE [Suspect]
     Active Substance: DEXAMETHASONE
     Route: 065
  7. FOTEMUSTINE [Suspect]
     Active Substance: FOTEMUSTINE
     Indication: Plasma cell leukaemia
     Dosage: 300MG/M2 ON DAY 1; SYSTEMIC THERAPY
     Route: 065
     Dates: start: 2019, end: 2019
  8. THIOTEPA [Suspect]
     Active Substance: THIOTEPA
     Indication: Plasma cell leukaemia
     Dosage: 5MG/KG ON DAY 5; SYSTEMIC THERAPY
     Route: 065
     Dates: start: 2019, end: 2019
  9. THIOTEPA [Suspect]
     Active Substance: THIOTEPA
     Dosage: 2.5MG/KG ON DAY 6; SYSTEMIC THERAPY
     Route: 065
     Dates: start: 2019, end: 2019
  10. POMALIDOMIDE [Suspect]
     Active Substance: POMALIDOMIDE
     Indication: Plasma cell leukaemia
     Route: 065

REACTIONS (5)
  - Gastrointestinal inflammation [Unknown]
  - Sepsis [Unknown]
  - Bone marrow failure [Unknown]
  - Pneumonia [Unknown]
  - Drug ineffective [Unknown]

NARRATIVE: CASE EVENT DATE: 20190101
